FAERS Safety Report 7067772-1 (Version None)
Quarter: 2010Q4

REPORT INFORMATION
  Report Type: 
  Country: None (occurrence: None)
  Receive Date: 20101028
  Receipt Date: 20100217
  Transmission Date: 20110411
  Serious: No
  Sender: FDA-Public Use
  Company Number: A0844958A

PATIENT
  Age: 75 Year
  Sex: Male

DRUGS (7)
  1. SEREVENT [Suspect]
     Indication: CHRONIC OBSTRUCTIVE PULMONARY DISEASE
     Dosage: 1PUFF TWICE PER DAY
     Route: 055
     Dates: start: 20100210
  2. NITROGLYCERIN [Concomitant]
  3. POTASSIUM CHLORIDE [Concomitant]
  4. PIOGLITAZONE [Concomitant]
  5. ISOSORBIDE DINITRATE [Concomitant]
  6. DILTIAZEM [Concomitant]
  7. UNKNOWN ANTI-DIABETIC MEDICATION [Concomitant]

REACTIONS (2)
  - HEART RATE DECREASED [None]
  - HYPOTENSION [None]
